FAERS Safety Report 23258752 (Version 1)
Quarter: 2023Q4

REPORT INFORMATION
  Report Type: Spontaneous
  Country: US (occurrence: US)
  Receive Date: 20231204
  Receipt Date: 20231204
  Transmission Date: 20240110
  Serious: No
  Sender: FDA-Public Use
  Company Number: US-GSK-US2023AMR164763

PATIENT
  Age: 70 Year
  Sex: Female
  Weight: 65.8 kg

DRUGS (1)
  1. ZEJULA [Suspect]
     Active Substance: NIRAPARIB
     Indication: Ovarian cancer
     Dosage: 200 MG, QD
     Route: 048
     Dates: start: 20231108

REACTIONS (6)
  - Pain [Unknown]
  - Headache [Unknown]
  - Insomnia [Unknown]
  - Abdominal pain upper [Unknown]
  - Pain of skin [Unknown]
  - Alopecia [Unknown]

NARRATIVE: CASE EVENT DATE: 20231122
